FAERS Safety Report 5293170-7 (Version None)
Quarter: 2007Q2

REPORT INFORMATION
  Report Type: 
  Country: None (occurrence: None)
  Receive Date: 20070411
  Receipt Date: 20070320
  Transmission Date: 20071010
  Serious: No
  Sender: FDA-Public Use
  Company Number: 2006UW24511

PATIENT
  Sex: Male
  Weight: 118.2 kg

DRUGS (6)
  1. SEROQUEL [Suspect]
     Indication: BIPOLAR DISORDER
     Dosage: 400 MG, 100 MG
     Route: 048
     Dates: start: 19981217
  2. ABILIFY [Concomitant]
  3. RISPERDAL [Concomitant]
  4. ZYPREXA [Concomitant]
  5. CYMBALTA [Concomitant]
  6. LEXAPRO [Concomitant]

REACTIONS (1)
  - DIABETES MELLITUS [None]
